FAERS Safety Report 23803085 (Version 1)
Quarter: 2024Q2

REPORT INFORMATION
  Report Type: Spontaneous
  Country: US (occurrence: None)
  Receive Date: 20240430
  Receipt Date: 20240430
  Transmission Date: 20240716
  Serious: Yes (Life-Threatening, Hospitalization, Other)
  Sender: FDA-Public Use
  Company Number: None

PATIENT
  Age: 55 Year
  Sex: Female
  Weight: 60.75 kg

DRUGS (2)
  1. BUSPIRONE [Suspect]
     Active Substance: BUSPIRONE HYDROCHLORIDE
     Indication: Product used for unknown indication
     Dosage: OTHER QUANTITY : 135 TABLET(S);?FREQUENCY : EVERY 8 HOURS;?
     Route: 048
     Dates: start: 20240329, end: 20240419
  2. DUONEB [Suspect]
     Active Substance: ALBUTEROL SULFATE\IPRATROPIUM BROMIDE
     Indication: Asthma
     Dosage: OTHER STRENGTH : (IPRATROPIUM BROMI;?OTHER QUANTITY : 1 INHALATION(S);?FREQUENCY : EVERY 6 HOURS;?
     Route: 048
     Dates: start: 20240325, end: 20240419

REACTIONS (3)
  - Contusion [None]
  - Mental disorder [None]
  - Impaired healing [None]

NARRATIVE: CASE EVENT DATE: 20240329
